FAERS Safety Report 5690951-2 (Version None)
Quarter: 2008Q2

REPORT INFORMATION
  Report Type: 
  Country: None (occurrence: None)
  Receive Date: 20080401
  Receipt Date: 20080327
  Transmission Date: 20081010
  Serious: Yes (Other)
  Sender: FDA-Public Use
  Company Number: AU-WYE-G01311408

PATIENT

DRUGS (3)
  1. EFFEXOR [Suspect]
     Dosage: UNKNOWN
     Route: 048
  2. ARIPIPRAZOLE [Interacting]
  3. QUETIAPINE FUMARATE [Interacting]

REACTIONS (3)
  - DRUG INTERACTION [None]
  - DRUG WITHDRAWAL SYNDROME [None]
  - PSYCHOTIC DISORDER [None]
